FAERS Safety Report 25845738 (Version 1)
Quarter: 2025Q3

REPORT INFORMATION
  Report Type: Spontaneous
  Country: US (occurrence: US)
  Receive Date: 20250925
  Receipt Date: 20250925
  Transmission Date: 20251021
  Serious: Yes (Other)
  Sender: MYLAN
  Company Number: US-MYLANLABS-2025M1080796

PATIENT
  Age: 6 Decade
  Sex: Male

DRUGS (13)
  1. BUDESONIDE [Suspect]
     Active Substance: BUDESONIDE
     Indication: Hypereosinophilic syndrome
  2. BUDESONIDE [Suspect]
     Active Substance: BUDESONIDE
     Indication: NSAID exacerbated respiratory disease
  3. PREDNISONE [Suspect]
     Active Substance: PREDNISONE
     Indication: Toxocariasis
  4. FORMOTEROL\MOMETASONE [Suspect]
     Active Substance: FORMOTEROL\MOMETASONE
     Indication: Hypereosinophilic syndrome
  5. FORMOTEROL\MOMETASONE [Suspect]
     Active Substance: FORMOTEROL\MOMETASONE
     Indication: NSAID exacerbated respiratory disease
  6. MONTELUKAST [Suspect]
     Active Substance: MONTELUKAST
     Indication: Hypereosinophilic syndrome
  7. MONTELUKAST [Suspect]
     Active Substance: MONTELUKAST
     Indication: NSAID exacerbated respiratory disease
  8. ALBENDAZOLE [Suspect]
     Active Substance: ALBENDAZOLE
     Indication: Toxocariasis
  9. DUPILUMAB [Concomitant]
     Active Substance: DUPILUMAB
     Indication: Hypereosinophilic syndrome
  10. DUPILUMAB [Concomitant]
     Active Substance: DUPILUMAB
     Indication: NSAID exacerbated respiratory disease
  11. ASPIRIN [Concomitant]
     Active Substance: ASPIRIN
     Indication: Product used for unknown indication
  12. MEPOLIZUMAB [Concomitant]
     Active Substance: MEPOLIZUMAB
     Indication: Hypereosinophilic syndrome
     Dosage: 300 MILLIGRAM, MONTHLY
  13. MEPOLIZUMAB [Concomitant]
     Active Substance: MEPOLIZUMAB
     Indication: NSAID exacerbated respiratory disease

REACTIONS (2)
  - Treatment failure [Unknown]
  - Drug ineffective [Unknown]
